FAERS Safety Report 4917909-2 (Version None)
Quarter: 2006Q1

REPORT INFORMATION
  Report Type: 
  Country: None (occurrence: None)
  Receive Date: 20060221
  Receipt Date: 20050930
  Transmission Date: 20060701
  Serious: Yes (Hospitalization)
  Sender: FDA-Public Use
  Company Number: US-MERCK-0510USA01860

PATIENT
  Age: 63 Year
  Sex: Male
  Weight: 86 kg

DRUGS (12)
  1. GUAIFENEX LA [Concomitant]
     Route: 065
  2. LIPITOR [Concomitant]
     Route: 065
  3. METROGEL [Concomitant]
     Route: 065
  4. NORVASC [Concomitant]
     Route: 065
  5. NIASPAN [Concomitant]
     Route: 065
  6. NADOLOL [Concomitant]
     Route: 065
  7. NIACIN [Concomitant]
     Route: 065
  8. VIOXX [Suspect]
     Indication: ARTHRITIS
     Route: 048
     Dates: start: 20001113, end: 20030127
  9. ALLOPURINOL [Concomitant]
     Route: 065
  10. ALTACE [Concomitant]
     Route: 065
  11. CLARINEX [Concomitant]
     Route: 065
  12. CORGARD [Concomitant]
     Route: 065

REACTIONS (9)
  - CARDIAC ANEURYSM [None]
  - CHEST PAIN [None]
  - CORONARY ARTERY DISEASE [None]
  - DIABETES MELLITUS NON-INSULIN-DEPENDENT [None]
  - EPISTAXIS [None]
  - GALLBLADDER DISORDER [None]
  - HYPERTRIGLYCERIDAEMIA [None]
  - MYOCARDIAL INFARCTION [None]
  - SINUS BRADYCARDIA [None]
